FAERS Safety Report 14872569 (Version 2)
Quarter: 2018Q2

REPORT INFORMATION
  Report Type: Report from Study
  Country: GB (occurrence: GB)
  Receive Date: 20180510
  Receipt Date: 20180613
  Transmission Date: 20180711
  Serious: Yes (Life-Threatening, Hospitalization, Other)
  Sender: FDA-Public Use
  Company Number: PHHY2018GB077286

PATIENT
  Sex: Male

DRUGS (1)
  1. COSENTYX [Suspect]
     Active Substance: SECUKINUMAB
     Indication: PSORIASIS
     Dosage: 150 MG, QW (FOR WEEKS 0, 1, 2, 3; THEREAFTER 150 MG MONTHLY)
     Route: 058
     Dates: start: 20180420

REACTIONS (11)
  - Hypoaesthesia [Unknown]
  - Speech disorder [Unknown]
  - Headache [Unknown]
  - Nausea [Unknown]
  - Depressed mood [Unknown]
  - Pruritus [Unknown]
  - Skin burning sensation [Unknown]
  - Sleep disorder [Unknown]
  - Malaise [Unknown]
  - Cerebrovascular accident [Unknown]
  - Hemiparaesthesia [Unknown]
